FAERS Safety Report 9370163 (Version 1)
Quarter: 2013Q2

REPORT INFORMATION
  Report Type: Spontaneous
  Country: US (occurrence: US)
  Receive Date: 20130626
  Receipt Date: 20130626
  Transmission Date: 20140414
  Serious: Yes (Death, Other)
  Sender: FDA-Public Use
  Company Number: US-JNJFOC-20130617328

PATIENT
  Sex: 0

DRUGS (13)
  1. DOXORUBICIN [Suspect]
     Indication: DIFFUSE LARGE B-CELL LYMPHOMA
     Route: 042
  2. RITUXIMAB [Suspect]
     Indication: DIFFUSE LARGE B-CELL LYMPHOMA
     Route: 042
  3. CYCLOPHOSPHAMIDE [Suspect]
     Indication: DIFFUSE LARGE B-CELL LYMPHOMA
     Route: 042
  4. VINCRISTINE [Suspect]
     Indication: DIFFUSE LARGE B-CELL LYMPHOMA
     Route: 042
  5. PREDNISONE [Suspect]
     Indication: DIFFUSE LARGE B-CELL LYMPHOMA
     Route: 048
  6. IFOSFAMIDE [Suspect]
     Indication: DIFFUSE LARGE B-CELL LYMPHOMA
     Route: 042
  7. CARBOPLATIN [Suspect]
     Indication: DIFFUSE LARGE B-CELL LYMPHOMA
     Route: 065
  8. ETOPOSIDE [Suspect]
     Indication: DIFFUSE LARGE B-CELL LYMPHOMA
     Route: 065
  9. MESNA [Suspect]
     Indication: DIFFUSE LARGE B-CELL LYMPHOMA
     Route: 042
  10. ACYCLOVIR [Concomitant]
     Route: 048
  11. SULFAMETHOXAZOLE/TRIMETHOPRIM [Concomitant]
     Dosage: 160MG/800MG
     Route: 048
  12. FLUCONAZOLE [Concomitant]
     Route: 048
  13. ALLOPURINOL [Concomitant]
     Dosage: FROM DAY 2 OF THE FIRST CYCLE FOR 14 DAYS
     Route: 048

REACTIONS (3)
  - Death [Fatal]
  - Diffuse large B-cell lymphoma [Unknown]
  - Wrong technique in drug usage process [Unknown]
